FAERS Safety Report 6436653-6 (Version None)
Quarter: 2009Q4

REPORT INFORMATION
  Report Type: 
  Country: None (occurrence: None)
  Receive Date: 20091111
  Receipt Date: 20091030
  Transmission Date: 20100525
  Serious: Yes (Hospitalization, Other)
  Sender: FDA-Public Use
  Company Number: US-PFIZER INC-2009274007

PATIENT
  Sex: Female
  Weight: 106.85 kg

DRUGS (5)
  1. GENOTROPIN [Suspect]
     Indication: HYPOPITUITARISM
     Dosage: 0.2 MG, 1X/DAY
     Route: 058
     Dates: start: 20090601, end: 20090830
  2. SYNTHROID [Concomitant]
     Dosage: UNK
  3. ACTOS [Concomitant]
     Dosage: UNK
  4. INSULIN [Concomitant]
     Dosage: UNK
  5. HYDROCORTISONE [Concomitant]
     Dosage: UNK

REACTIONS (2)
  - GASTROINTESTINAL HAEMORRHAGE [None]
  - OSTEOMYELITIS ACUTE [None]
